FAERS Safety Report 6994689-0 (Version None)
Quarter: 2010Q3

REPORT INFORMATION
  Report Type: 
  Country: None (occurrence: None)
  Receive Date: 20100917
  Receipt Date: 20081202
  Transmission Date: 20110219
  Serious: Yes (Other)
  Sender: FDA-Public Use
  Company Number: HQ3203412JUL2002

PATIENT
  Sex: Female
  Weight: 63.56 kg

DRUGS (2)
  1. PREMPRO [Suspect]
     Dosage: UNKNOWN
     Route: 048
     Dates: start: 19940101, end: 19980101
  2. NONE [Concomitant]

REACTIONS (1)
  - BREAST CANCER FEMALE [None]
